FAERS Safety Report 18664783 (Version 1)
Quarter: 2020Q4

REPORT INFORMATION
  Report Type: Spontaneous
  Country: US (occurrence: US)
  Receive Date: 20201225
  Receipt Date: 20201225
  Transmission Date: 20210114
  Serious: Yes (Other)
  Sender: FDA-Public Use
  Company Number: US-SHILPA MEDICARE LIMITED-SML-US-2020-00887

PATIENT
  Age: 3 Year
  Sex: Female

DRUGS (2)
  1. IRINOTECAN, UNKNOWN [Suspect]
     Active Substance: IRINOTECAN
     Indication: MEDULLOBLASTOMA
     Dosage: SECOND LINE THERAPY
     Route: 065
  2. TEMOZOLOMIDE. [Suspect]
     Active Substance: TEMOZOLOMIDE
     Indication: MEDULLOBLASTOMA
     Dosage: SECOND LINE THERAPY
     Route: 065

REACTIONS (3)
  - Medulloblastoma recurrent [Recovered/Resolved]
  - Ganglioneuroma [Recovered/Resolved]
  - Gliosis [Recovered/Resolved]
